FAERS Safety Report 9585179 (Version 1)
Quarter: 2013Q4

REPORT INFORMATION
  Report Type: Spontaneous
  Country: US (occurrence: US)
  Receive Date: 20131002
  Receipt Date: 20131002
  Transmission Date: 20140711
  Serious: No
  Sender: FDA-Public Use
  Company Number: US-AMGEN-USASP2013062236

PATIENT
  Age: 57 Year
  Sex: Female
  Weight: 81.63 kg

DRUGS (5)
  1. ENBREL [Suspect]
     Indication: RHEUMATOID ARTHRITIS
     Dosage: 50 MG, QWK
     Route: 058
     Dates: start: 20010101
  2. ENBREL [Suspect]
     Indication: PSORIATIC ARTHROPATHY
  3. ENBREL [Suspect]
     Indication: OSTEOARTHRITIS
  4. REMICADE [Concomitant]
     Dosage: UNK
  5. HUMIRA [Concomitant]
     Dosage: UNK

REACTIONS (1)
  - Pain [Unknown]
